FAERS Safety Report 7498550-7 (Version None)
Quarter: 2011Q2

REPORT INFORMATION
  Report Type: 
  Country: None (occurrence: None)
  Receive Date: 20110524
  Receipt Date: 20081001
  Transmission Date: 20111010
  Serious: Yes (Other)
  Sender: FDA-Public Use
  Company Number: US-BAYER-200836274NA

PATIENT
  Sex: Male
  Weight: 83 kg

DRUGS (8)
  1. ACETYLSALICYLIC ACID SRT [Concomitant]
     Dosage: 81MG DAILY
  2. INSULIN [Concomitant]
     Dosage: UNK
     Route: 042
     Dates: start: 20050510
  3. PROTAMINE SULFATE [Concomitant]
     Dosage: UNK
     Route: 042
     Dates: start: 20050510
  4. TRASYLOL [Suspect]
     Indication: AORTIC VALVE REPLACEMENT
     Dosage: 100 ML, ONCE
     Route: 042
     Dates: start: 20050510, end: 20050510
  5. NITROGLYCERIN [Concomitant]
     Dosage: UNK
     Route: 042
     Dates: start: 20050510
  6. HEPARIN [Concomitant]
     Dosage: UNK
     Route: 042
     Dates: start: 20050510
  7. TRASYLOL [Suspect]
     Dosage: 25 CC/HR INFUSION
     Route: 042
     Dates: start: 20050510, end: 20050510
  8. NORVASC [Concomitant]
     Dosage: 2.5MG DAILY

REACTIONS (12)
  - CARDIAC ARREST [None]
  - ANXIETY [None]
  - PAIN [None]
  - EMOTIONAL DISTRESS [None]
  - RENAL IMPAIRMENT [None]
  - FEAR [None]
  - ANHEDONIA [None]
  - RENAL FAILURE [None]
  - STRESS [None]
  - UNEVALUABLE EVENT [None]
  - INJURY [None]
  - RENAL INJURY [None]
